FAERS Safety Report 7865842-9 (Version None)
Quarter: 2011Q4

REPORT INFORMATION
  Report Type: 
  Country: None (occurrence: None)
  Receive Date: 20111028
  Receipt Date: 20110307
  Transmission Date: 20120403
  Serious: No
  Sender: FDA-Public Use
  Company Number: US-GLAXOSMITHKLINE-A0916983A

PATIENT
  Age: 63 Year
  Sex: Female

DRUGS (4)
  1. BONIVA [Concomitant]
  2. CALCIUM CARBONATE [Concomitant]
  3. ADVAIR DISKUS 100/50 [Suspect]
     Indication: ASTHMA
     Dosage: 1PUFF PER DAY
     Route: 055
  4. ALLERGY INJECTIONS [Concomitant]

REACTIONS (3)
  - PRODUCT QUALITY ISSUE [None]
  - COUGH [None]
  - DYSPNOEA EXERTIONAL [None]
